FAERS Safety Report 19153963 (Version 2)
Quarter: 2021Q2

REPORT INFORMATION
  Report Type: Report from Study
  Country: DE (occurrence: DE)
  Receive Date: 20210419
  Receipt Date: 20210513
  Transmission Date: 20210717
  Serious: Yes (Other)
  Sender: FDA-Public Use
  Company Number: DE-SHIRE-DE201901071

PATIENT
  Age: 62 Year
  Sex: Female

DRUGS (6)
  1. HUMAN IMMUNOGLOBULIN; HYALURONIDASE [Suspect]
     Active Substance: HUMAN IMMUNOGLOBULIN G\HYALURONIDASE RECOMBINANT HUMAN
     Indication: IMMUNODEFICIENCY
     Dosage: 30 G, EVERY 4 WK
     Route: 058
     Dates: start: 20181122
  2. CORTISONE [Concomitant]
     Active Substance: CORTISONE
     Indication: MULTIPLE SCLEROSIS RELAPSE
     Dosage: UNK
     Route: 065
     Dates: start: 20210101, end: 20210108
  3. METHYLPREDNISOLONE. [Concomitant]
     Active Substance: METHYLPREDNISOLONE
     Indication: UNEVALUABLE EVENT
     Dosage: 1000 MILLIGRAM, QD
     Route: 065
     Dates: start: 20201229, end: 20201231
  4. PREDNISOLONE. [Concomitant]
     Active Substance: PREDNISOLONE
     Dosage: 50 MILLIGRAM, QD
  5. HUMAN IMMUNOGLOBULIN; HYALURONIDASE [Suspect]
     Active Substance: HUMAN IMMUNOGLOBULIN G\HYALURONIDASE RECOMBINANT HUMAN
     Dosage: 20 GRAM, Q2WEEKS
     Route: 058
  6. HUMAN IMMUNOGLOBULIN; HYALURONIDASE [Suspect]
     Active Substance: HUMAN IMMUNOGLOBULIN G\HYALURONIDASE RECOMBINANT HUMAN
     Dosage: 20 GRAM, Q2WEEKS
     Route: 065
     Dates: start: 20201228, end: 20210411

REACTIONS (9)
  - Multiple sclerosis relapse [Unknown]
  - Red blood cell count decreased [Recovering/Resolving]
  - Candida infection [Unknown]
  - Folate deficiency [Unknown]
  - Bronchitis [Not Recovered/Not Resolved]
  - Circulatory collapse [Unknown]
  - Platelet count decreased [Recovering/Resolving]
  - Syncope [Unknown]
  - Haemoglobin decreased [Recovering/Resolving]

NARRATIVE: CASE EVENT DATE: 20190108
